FAERS Safety Report 8836729 (Version 4)
Quarter: 2012Q4

REPORT INFORMATION
  Report Type: Report from Study
  Country: BR (occurrence: BR)
  Receive Date: 20121012
  Receipt Date: 20121112
  Transmission Date: 20130627
  Serious: Yes (Hospitalization)
  Sender: FDA-Public Use
  Company Number: BR-SANOFI-AVENTIS-2012SA073786

PATIENT
  Age: 73 Year
  Sex: Male

DRUGS (2)
  1. CABAZITAXEL [Suspect]
     Indication: CARCINOMA OF THE PROSTATE METASTATIC
     Route: 042
     Dates: start: 20120904, end: 20120904
  2. PREDNISONE [Suspect]
     Indication: CARCINOMA OF THE PROSTATE METASTATIC
     Route: 048
     Dates: start: 20120904, end: 20121002

REACTIONS (2)
  - Cholecystitis [Recovered/Resolved]
  - Supraventricular tachycardia [Recovered/Resolved]
